FAERS Safety Report 11400839 (Version 1)
Quarter: 2015Q3

REPORT INFORMATION
  Report Type: Report from Study
  Country: US (occurrence: US)
  Receive Date: 20150820
  Receipt Date: 20150820
  Transmission Date: 20151125
  Serious: Yes (Other)
  Sender: FDA-Public Use
  Company Number: US-PURDUE-USA-2015-0125698

PATIENT
  Age: 68 Year
  Sex: Female

DRUGS (2)
  1. OXYCONTIN [Suspect]
     Active Substance: OXYCODONE HYDROCHLORIDE
     Indication: BONE CANCER
     Dosage: 40 MG, BID
     Route: 048
     Dates: start: 20150626
  2. OXYCONTIN [Suspect]
     Active Substance: OXYCODONE HYDROCHLORIDE
     Dosage: UNK
     Route: 048
     Dates: start: 2014

REACTIONS (2)
  - Compression fracture [Unknown]
  - Pain [Unknown]

NARRATIVE: CASE EVENT DATE: 201507
